FAERS Safety Report 22173602 (Version 1)
Quarter: 2023Q2

REPORT INFORMATION
  Report Type: Spontaneous
  Country: US (occurrence: US)
  Receive Date: 20230404
  Receipt Date: 20230404
  Transmission Date: 20230722
  Serious: Yes (Other)
  Sender: FDA-Public Use
  Company Number: US-AMERICAN REGENT INC-2023000834

PATIENT

DRUGS (1)
  1. ESMOLOL HYDROCHLORIDE [Suspect]
     Active Substance: ESMOLOL HYDROCHLORIDE
     Indication: Fallot^s tetralogy
     Dosage: UNK; CONTINUOUS PERIOPERATIVE ADMINISTRATION
     Route: 042

REACTIONS (2)
  - Ventricular dysfunction [Unknown]
  - Product use issue [Unknown]
